FAERS Safety Report 4712367-5 (Version None)
Quarter: 2005Q3

REPORT INFORMATION
  Report Type: 
  Country: None (occurrence: None)
  Receive Date: 20050712
  Receipt Date: 20050627
  Transmission Date: 20060218
  Serious: Yes (Hospitalization)
  Sender: FDA-Public Use
  Company Number: B0238855A

PATIENT
  Age: 65 Year
  Sex: Female

DRUGS (1)
  1. LITHIUM SALT (LITHIUM SALT) [Suspect]
     Indication: DEPRESSION
     Dosage: 900 MG/PER DAY

REACTIONS (5)
  - AKATHISIA [None]
  - DYSKINESIA [None]
  - MUTISM [None]
  - PARKINSONISM [None]
  - PYREXIA [None]
